FAERS Safety Report 7280181-5 (Version None)
Quarter: 2011Q1

REPORT INFORMATION
  Report Type: 
  Country: None (occurrence: None)
  Receive Date: 20110208
  Receipt Date: 20110131
  Transmission Date: 20110831
  Serious: Yes (Other)
  Sender: FDA-Public Use
  Company Number: BE-JNJFOC-20110200130

PATIENT

DRUGS (1)
  1. INVEGA [Suspect]
     Indication: ILL-DEFINED DISORDER
     Route: 048

REACTIONS (6)
  - FATIGUE [None]
  - MOVEMENT DISORDER [None]
  - HEART RATE INCREASED [None]
  - RESPIRATORY DISORDER [None]
  - HYPERTENSION [None]
  - DRUG INEFFECTIVE [None]
